FAERS Safety Report 15020664 (Version 1)
Quarter: 2018Q2

REPORT INFORMATION
  Report Type: Spontaneous
  Country: PL (occurrence: PL)
  Receive Date: 20180618
  Receipt Date: 20180618
  Transmission Date: 20180711
  Serious: Yes (Hospitalization, Other)
  Sender: FDA-Public Use
  Company Number: PHHY2018PL022459

PATIENT

DRUGS (1)
  1. DICLOFENAC [Suspect]
     Active Substance: DICLOFENAC
     Indication: GOUT
     Route: 065

REACTIONS (7)
  - Oesophagitis [Unknown]
  - Normocytic anaemia [Unknown]
  - Tubulointerstitial nephritis [Recovered/Resolved]
  - Overdose [Unknown]
  - Duodenitis [Unknown]
  - Occult blood [Unknown]
  - Gastric disorder [Unknown]
